FAERS Safety Report 20458817 (Version 1)
Quarter: 2022Q1

REPORT INFORMATION
  Report Type: Spontaneous
  Country: KR (occurrence: KR)
  Receive Date: 20220211
  Receipt Date: 20220211
  Transmission Date: 20220424
  Serious: Yes (Hospitalization)
  Sender: FDA-Public Use
  Company Number: KR-MSNLABS-2022MSNLIT00110

PATIENT

DRUGS (4)
  1. PREGABALIN [Suspect]
     Active Substance: PREGABALIN
     Indication: Seizure
     Route: 065
  2. CARBAMAZEPINE [Concomitant]
     Active Substance: CARBAMAZEPINE
     Indication: Seizure
     Route: 065
  3. PERAMPANEL [Concomitant]
     Active Substance: PERAMPANEL
     Indication: Seizure
     Route: 065
  4. LACOSAMIDE [Concomitant]
     Active Substance: LACOSAMIDE
     Indication: Seizure
     Route: 065

REACTIONS (1)
  - Drug ineffective [Unknown]
